FAERS Safety Report 6768180-0 (Version None)
Quarter: 2010Q2

REPORT INFORMATION
  Report Type: 
  Country: None (occurrence: None)
  Receive Date: 20100614
  Receipt Date: 20100604
  Transmission Date: 20101027
  Serious: Yes (Hospitalization)
  Sender: FDA-Public Use
  Company Number: US-SHIRE-ALL1-2010-03203

PATIENT

DRUGS (5)
  1. FOSRENOL [Suspect]
     Indication: HYPERPHOSPHATAEMIA
     Dosage: 1000 MG, OTHER (3) TABS WITH EACH MEAL AND (1) WITH SNACKS
     Route: 048
     Dates: start: 20090101
  2. FOSRENOL [Suspect]
     Dosage: 1000 MG, OTHER (1 TAB WITH SNACKS)
     Route: 048
     Dates: start: 20090101
  3. IRON [Suspect]
     Indication: DRUG USE FOR UNKNOWN INDICATION
     Dosage: UNK, UNKNOWN
     Route: 065
  4. PHOSLO [Suspect]
     Indication: DRUG USE FOR UNKNOWN INDICATION
     Dosage: UNK, UNKNOWN
     Route: 065
  5. UNSPECIFIED MEDICATION FOR CONSTIPATION [Suspect]
     Indication: CONSTIPATION
     Dosage: UNK, UNKNOWN
     Route: 065

REACTIONS (4)
  - DEHYDRATION [None]
  - DIARRHOEA [None]
  - INFLUENZA [None]
  - VOMITING [None]
